FAERS Safety Report 8538436-X (Version None)
Quarter: 2012Q3

REPORT INFORMATION
  Report Type: 
  Country: None (occurrence: None)
  Receive Date: 20120712
  Receipt Date: 20120702
  Transmission Date: 20120928
  Serious: Yes (Other)
  Sender: FDA-Public Use
  Company Number: EU-2012-10193

PATIENT
  Age: 63 Year
  Sex: Male

DRUGS (6)
  1. OMEPRAZOLE (OMEPRAZOLE SODIUM) [Concomitant]
  2. ATORVASTATIN CALCIUM [Concomitant]
  3. CILOSTAZOL [Suspect]
     Indication: INTERMITTENT CLAUDICATION
     Dosage: 100 MG MILLIGRAM(S), BID, ORAL
     Route: 048
     Dates: start: 20120301, end: 20120528
  4. DICLOFENAC SODIUM [Concomitant]
  5. ASPIRIN [Suspect]
     Dosage: 100 MG MILLIGRAM(S), UNKNOWN, ORAL
     Route: 048
     Dates: start: 20120301
  6. ENALAPRIL + HIDROCLOROTIAZIDA (ENALAPRIL MALEATE, HYDROCHLOROTHIAZIDE) [Concomitant]

REACTIONS (3)
  - ABDOMINAL WALL HAEMATOMA [None]
  - HAEMATOMA [None]
  - DRUG INTERACTION [None]
